FAERS Safety Report 10884210 (Version 2)
Quarter: 2015Q2

REPORT INFORMATION
  Report Type: Spontaneous
  Country: US (occurrence: US)
  Receive Date: 20150304
  Receipt Date: 20150408
  Transmission Date: 20150821
  Serious: No
  Sender: FDA-Public Use
  Company Number: US-BIOGENIDEC-2015BI019647

PATIENT
  Sex: Female

DRUGS (2)
  1. TECFIDERA [Suspect]
     Active Substance: DIMETHYL FUMARATE
     Indication: PRODUCT USED FOR UNKNOWN INDICATION
     Route: 048
     Dates: start: 20140820, end: 20150120
  2. AVONEX [Concomitant]
     Active Substance: INTERFERON BETA-1A
     Route: 030
     Dates: start: 20150212

REACTIONS (9)
  - Pain in extremity [Unknown]
  - Hypoaesthesia [Unknown]
  - General symptom [Recovered/Resolved]
  - Rash [Recovered/Resolved]
  - Heart rate irregular [Unknown]
  - Dermatitis bullous [Unknown]
  - Headache [Unknown]
  - Malaise [Recovered/Resolved]
  - Hot flush [Unknown]
